FAERS Safety Report 15945746 (Version 2)
Quarter: 2019Q3

REPORT INFORMATION
  Report Type: Spontaneous
  Country: US (occurrence: US)
  Receive Date: 20190211
  Receipt Date: 20190729
  Transmission Date: 20191004
  Serious: Yes (Hospitalization, Other)
  Sender: FDA-Public Use
  Company Number: US-AUROBINDO-AUR-APL-2019-005270

PATIENT

DRUGS (4)
  1. LORAZEPAM. [Concomitant]
     Active Substance: LORAZEPAM
     Indication: PSYCHOTIC DISORDER
     Dosage: 2 MILLIGRAM
     Route: 048
  2. LITHIUM. [Suspect]
     Active Substance: LITHIUM
     Indication: MANIA
     Dosage: 300 MILLIGRAM, DAILY (TOOK LITHIUM ONLY OCCASIONALLY)
     Route: 048
  3. OLANZAPINE. [Suspect]
     Active Substance: OLANZAPINE
     Indication: PSYCHOTIC DISORDER
     Dosage: 5 MILLIGRAM
     Route: 030
  4. LITHIUM. [Suspect]
     Active Substance: LITHIUM
     Dosage: 600 MILLIGRAM, DAILY (NIGHTLY; TOOK LITHIUM ONLY OCCASIONALLY)
     Route: 048

REACTIONS (1)
  - Catatonia [Recovering/Resolving]
